FAERS Safety Report 4713163-5 (Version None)
Quarter: 2005Q3

REPORT INFORMATION
  Report Type: 
  Country: None (occurrence: None)
  Receive Date: 20050701
  Receipt Date: 20040513
  Transmission Date: 20060218
  Serious: Yes (Other)
  Sender: FDA-Public Use
  Company Number: 2004032698

PATIENT
  Age: 14 Year
  Sex: Female

DRUGS (5)
  1. ZOLOFT [Suspect]
     Indication: BIPOLAR DISORDER
     Dosage: UNK (50 MG), ORAL
     Route: 048
     Dates: start: 20040511
  2. ZOLOFT [Suspect]
     Indication: DEPRESSION
     Dosage: UNK (50 MG), ORAL
     Route: 048
     Dates: start: 20040511
  3. OLANZAPINE [Concomitant]
  4. OXCARBAZEPINE (OXCARBAZEPINE) [Concomitant]
  5. DIPHENHYDRAMINE HCL [Concomitant]

REACTIONS (2)
  - HYPOTENSION [None]
  - LOSS OF CONSCIOUSNESS [None]
